FAERS Safety Report 9898120 (Version 2)
Quarter: 2014Q1

REPORT INFORMATION
  Report Type: Spontaneous
  Country: US (occurrence: US)
  Receive Date: 20140214
  Receipt Date: 20140214
  Transmission Date: 20141002
  Serious: No
  Sender: FDA-Public Use
  Company Number: US-GILEAD-2011-0040736

PATIENT
  Sex: Female

DRUGS (2)
  1. LETAIRIS [Suspect]
     Indication: PRODUCT USED FOR UNKNOWN INDICATION
     Route: 048
     Dates: start: 20091217
  2. VITAMIN D [Concomitant]

REACTIONS (12)
  - Vitamin D deficiency [Unknown]
  - Feeling abnormal [Unknown]
  - Atrophy [Unknown]
  - Balance disorder [Unknown]
  - Vertigo [Unknown]
  - Movement disorder [Unknown]
  - Muscle tightness [Unknown]
  - Feeling abnormal [Unknown]
  - Pain [Unknown]
  - Unevaluable event [Unknown]
  - Unevaluable event [Unknown]
  - Palpitations [Unknown]
